FAERS Safety Report 19322763 (Version 2)
Quarter: 2021Q2

REPORT INFORMATION
  Report Type: Spontaneous
  Country: CA (occurrence: CA)
  Receive Date: 20210527
  Receipt Date: 20210531
  Transmission Date: 20210717
  Serious: Yes (Hospitalization, Other)
  Sender: FDA-Public Use
  Company Number: CA-CELLTRION INC.-2021CA007118

PATIENT

DRUGS (2)
  1. INFLECTRA [Suspect]
     Active Substance: INFLIXIMAB-DYYB
     Dosage: 300 MG (Q 0, 2, 6 WEEKS THEN EVERY 8 WEEKS)
     Route: 041
     Dates: start: 20210317, end: 20210317
  2. INFLECTRA [Suspect]
     Active Substance: INFLIXIMAB-DYYB
     Indication: PSORIATIC ARTHROPATHY
     Dosage: 300 MG (Q 0, 2, 6 WEEKS THEN EVERY 8 WEEKS)
     Route: 041
     Dates: start: 20210204

REACTIONS (2)
  - Tuberculosis [Not Recovered/Not Resolved]
  - Coma [Not Recovered/Not Resolved]
